FAERS Safety Report 4819977-5 (Version None)
Quarter: 2005Q4

REPORT INFORMATION
  Report Type: 
  Country: None (occurrence: None)
  Receive Date: 20051103
  Receipt Date: 20050719
  Transmission Date: 20060501
  Serious: Yes (Hospitalization, Other)
  Sender: FDA-Public Use
  Company Number: US-MERCK-0507USA03136

PATIENT
  Age: 73 Year
  Sex: Female

DRUGS (51)
  1. CATAPRES [Concomitant]
     Indication: HYPERTENSION
     Route: 065
  2. FLUOXETINE [Concomitant]
     Indication: STRESS
     Route: 065
  3. HYZAAR [Concomitant]
     Indication: HYPERTENSION
     Route: 048
     Dates: start: 19990221
  4. HYZAAR [Concomitant]
     Route: 048
     Dates: start: 20020612
  5. HYZAAR [Concomitant]
     Route: 048
     Dates: start: 20010118, end: 20020612
  6. MEVACOR [Concomitant]
     Indication: BLOOD CHOLESTEROL INCREASED
     Route: 048
  7. MEVACOR [Concomitant]
     Route: 048
  8. ORABET (METFORMIN HYDROCHLORIDE) [Concomitant]
     Indication: DIABETES MELLITUS
     Route: 065
  9. NORVASC [Concomitant]
     Indication: CARDIAC DISORDER
     Route: 065
     Dates: start: 19990220, end: 20050101
  10. NORVASC [Concomitant]
     Route: 065
     Dates: start: 20010118
  11. PRAVACHOL [Concomitant]
     Indication: BLOOD CHOLESTEROL INCREASED
     Route: 065
  12. DETROL [Concomitant]
     Indication: BLADDER SPASM
     Route: 065
     Dates: start: 20010118
  13. GLUCOPHAGE [Concomitant]
     Indication: DIABETES MELLITUS
     Route: 065
     Dates: start: 20020612
  14. LEVAQUIN [Concomitant]
     Indication: URINARY TRACT INFECTION
     Route: 065
  15. MACROBID [Concomitant]
     Route: 065
  16. PREVACID [Concomitant]
     Indication: ULCER
     Route: 065
  17. PROZAC [Concomitant]
     Indication: STRESS
     Route: 065
     Dates: start: 20020911
  18. ZOCOR [Concomitant]
     Indication: BLOOD CHOLESTEROL INCREASED
     Route: 048
     Dates: start: 19990227, end: 20030101
  19. ZOCOR [Concomitant]
     Route: 048
     Dates: start: 20010118, end: 20020612
  20. ZOCOR [Concomitant]
     Route: 048
     Dates: start: 20020612
  21. CELEBREX [Concomitant]
     Route: 065
     Dates: end: 20010101
  22. FUROSEMIDE [Concomitant]
     Indication: HYPERTENSION
     Route: 065
     Dates: start: 20000703, end: 20000101
  23. FUROSEMIDE [Concomitant]
     Indication: POLYURIA
     Route: 065
     Dates: start: 20000703, end: 20000101
  24. ESTRADIOL [Concomitant]
     Indication: HORMONE REPLACEMENT THERAPY
     Route: 065
     Dates: start: 19990405, end: 20020306
  25. ESTRADIOL [Concomitant]
     Route: 065
     Dates: start: 20010118
  26. CEFTIN [Concomitant]
     Indication: URINARY TRACT INFECTION
     Route: 065
  27. CEPHALEXIN [Concomitant]
     Indication: URINARY TRACT INFECTION
     Route: 065
  28. CIPRO [Concomitant]
     Indication: URINARY TRACT INFECTION
     Route: 065
  29. DITROPAN [Concomitant]
     Indication: BLADDER SPASM
     Route: 065
  30. MOBIC [Concomitant]
     Indication: PAIN
     Route: 065
  31. CARISOPRODOL [Concomitant]
     Indication: MUSCLE RELAXANT THERAPY
     Route: 065
  32. ENULOSE [Concomitant]
     Indication: CONSTIPATION
     Route: 065
  33. IBUPROFEN [Concomitant]
     Indication: PAIN
     Route: 048
     Dates: start: 20020612, end: 20020101
  34. IBUPROFEN [Concomitant]
     Route: 065
     Dates: end: 20020101
  35. IBUPROFEN [Concomitant]
     Route: 065
     Dates: end: 20020612
  36. MINOCYCLINE [Concomitant]
     Route: 065
  37. NITROFURANTOIN [Concomitant]
     Indication: URINARY TRACT INFECTION
     Route: 065
  38. POLY IRON 150 [Concomitant]
     Indication: BLOOD IRON DECREASED
     Route: 065
  39. POTASSIUM (UNSPECIFIED) [Concomitant]
     Indication: MEDICAL DIET
     Route: 065
  40. PHENAZOPYRIDINE HYDROCHLORIDE [Concomitant]
     Route: 065
  41. RANITIDINE [Concomitant]
     Indication: GASTRIC DISORDER
     Route: 065
  42. TRIMETHOPRIM [Concomitant]
     Indication: MUSCLE RELAXANT THERAPY
     Route: 065
  43. WARFARIN [Concomitant]
     Indication: BLOOD DISORDER
     Route: 065
  44. XENICAL [Concomitant]
     Indication: WEIGHT
     Route: 065
  45. ZITHROMAX [Concomitant]
     Indication: URINARY TRACT INFECTION
     Route: 065
  46. ACETAMINOPHEN AND OXYCODONE HYDROCHLORIDE [Concomitant]
     Indication: PAIN
     Route: 065
  47. VIOXX [Suspect]
     Indication: ARTHRALGIA
     Route: 048
     Dates: start: 20010201, end: 20040701
  48. [THERAPY UNSPECIFIED] [Concomitant]
     Indication: URINARY TRACT INFECTION
     Route: 065
  49. ACETAMINOPHEN AND HYDROCODONE BITARTRATE [Concomitant]
     Indication: NASAL CONGESTION
     Route: 065
  50. CALCIUM (UNSPECIFIED) [Concomitant]
     Route: 065
     Dates: start: 20010118
  51. CALCIUM (UNSPECIFIED) [Concomitant]
     Route: 065
     Dates: start: 20010118

REACTIONS (9)
  - ARTHROPATHY [None]
  - GALLBLADDER DISORDER [None]
  - GASTRIC DISORDER [None]
  - HERNIA [None]
  - MYOCARDIAL INFARCTION [None]
  - PAIN [None]
  - SILENT MYOCARDIAL INFARCTION [None]
  - SPINAL COLUMN STENOSIS [None]
  - STRESS [None]
